FAERS Safety Report 16836369 (Version 2)
Quarter: 2020Q4

REPORT INFORMATION
  Report Type: Report from Study
  Country: US (occurrence: US)
  Receive Date: 20190921
  Receipt Date: 20201010
  Transmission Date: 20210113
  Serious: No
  Sender: FDA-Public Use
  Company Number: US-IPSEN BIOPHARMACEUTICALS, INC.-2019-03830

PATIENT
  Age: 4 Year
  Sex: Male
  Weight: 22.9 kg

DRUGS (17)
  1. DYSPORT [Suspect]
     Active Substance: ABOBOTULINUMTOXINA
     Indication: MUSCLE SPASTICITY
  2. IBUPROFEN. [Concomitant]
     Active Substance: IBUPROFEN
     Indication: PAIN
     Dosage: PRN-AS NEEDED
     Dates: start: 20161112
  3. OFLOXACIN. [Concomitant]
     Active Substance: OFLOXACIN
     Indication: OTITIS EXTERNA
     Dates: start: 20190521, end: 20190528
  4. MELATONIN [Concomitant]
     Active Substance: MELATONIN
     Indication: INSOMNIA
     Dosage: AS NEEDED
     Dates: start: 20200223, end: 20200325
  5. DYSPORT [Suspect]
     Active Substance: ABOBOTULINUMTOXINA
     Indication: MUSCLE SPASTICITY
     Dosage: 400 UNITS
     Route: 030
     Dates: start: 20180406, end: 20180406
  6. MILK OF MAGNESIA [Concomitant]
     Active Substance: MAGNESIUM HYDROXIDE
     Indication: CONSTIPATION
     Dosage: 1 TABLESPOON PRN-AS NEEDED
     Dates: start: 20180730
  7. MELATONIN [Concomitant]
     Active Substance: MELATONIN
     Dates: start: 20200325, end: 20200331
  8. CULTURELLE KIDS CHEW [Concomitant]
     Indication: PROBIOTIC THERAPY
     Dates: start: 20180730
  9. CHOLECALCIFEROL [Concomitant]
     Active Substance: CHOLECALCIFEROL
     Indication: VITAMIN SUPPLEMENTATION
     Dates: start: 20190108
  10. MIRALAX [Concomitant]
     Active Substance: POLYETHYLENE GLYCOL 3350
     Indication: CONSTIPATION
     Dosage: 1 TBSP
     Dates: start: 20181119
  11. CLONIDINE. [Concomitant]
     Active Substance: CLONIDINE
     Indication: INSOMNIA
     Dates: start: 20200331
  12. DYSPORT [Suspect]
     Active Substance: ABOBOTULINUMTOXINA
     Indication: OFF LABEL USE
  13. DYSPORT [Suspect]
     Active Substance: ABOBOTULINUMTOXINA
     Indication: MUSCLE SPASTICITY
  14. AMOXICILLIN. [Concomitant]
     Active Substance: AMOXICILLIN
     Indication: OTITIS MEDIA ACUTE
     Dates: start: 20191206, end: 20191216
  15. MIRALAX [Concomitant]
     Active Substance: POLYETHYLENE GLYCOL 3350
     Indication: CONSTIPATION
     Dosage: 1 TBSP
     Dates: start: 20140329, end: 20181119
  16. BACLOFEN. [Suspect]
     Active Substance: BACLOFEN
     Indication: MUSCLE SPASTICITY
     Dates: start: 20150102
  17. OFLOXACIN. [Concomitant]
     Active Substance: OFLOXACIN
     Dosage: 5 OTHER
     Route: 050
     Dates: start: 20191205, end: 20191212

REACTIONS (3)
  - Herpes virus infection [Recovered/Resolved]
  - Constipation [Recovered/Resolved]
  - Off label use [Unknown]

NARRATIVE: CASE EVENT DATE: 20181119
